FAERS Safety Report 23223992 (Version 1)
Quarter: 2023Q4

REPORT INFORMATION
  Report Type: Spontaneous
  Country: ES (occurrence: ES)
  Receive Date: 20231124
  Receipt Date: 20231124
  Transmission Date: 20240110
  Serious: Yes (Other)
  Sender: FDA-Public Use
  Company Number: None

PATIENT
  Age: 34 Year
  Sex: Female
  Weight: 85 kg

DRUGS (6)
  1. TOPIRAMATO CINFA [Concomitant]
     Indication: Tension headache
     Dosage: 25.0 MG A-DECE
     Route: 048
     Dates: start: 20230814
  2. ELETRIPTAN HYDROBROMIDE [Concomitant]
     Active Substance: ELETRIPTAN HYDROBROMIDE
     Indication: Tension headache
     Dosage: 20.0 MG C/72 HORAS
     Route: 048
     Dates: start: 20230815
  3. NAPROXENO SODICO AUROVITAS [Concomitant]
     Indication: Inflammation
     Dosage: 550.0 MG C/7 DIAS
     Route: 048
     Dates: start: 20230520
  4. TOPAMAX [Concomitant]
     Active Substance: TOPIRAMATE
     Indication: Contusion
     Dosage: 50.0 MG A-DECE
     Route: 048
     Dates: start: 20230414
  5. OZEMPIC [Suspect]
     Active Substance: SEMAGLUTIDE
     Dosage: 1 DF QW
     Dates: start: 20230929
  6. OZEMPIC [Suspect]
     Active Substance: SEMAGLUTIDE
     Indication: Obesity
     Dosage: 0.5  (1 DF QW)
     Route: 058
     Dates: start: 20230922

REACTIONS (2)
  - Loss of consciousness [Recovered/Resolved]
  - Off label use [Recovered/Resolved]

NARRATIVE: CASE EVENT DATE: 20230922
